FAERS Safety Report 24247095 (Version 1)
Quarter: 2024Q3

REPORT INFORMATION
  Report Type: Spontaneous
  Country: JP (occurrence: JP)
  Receive Date: 20240826
  Receipt Date: 20240826
  Transmission Date: 20241017
  Serious: Yes (Hospitalization, Other)
  Sender: AMGEN
  Company Number: JP-KYOWAKIRIN-2024KK019233

PATIENT
  Sex: Male

DRUGS (7)
  1. FILGRASTIM [Suspect]
     Active Substance: FILGRASTIM
     Indication: White blood cell count decreased
     Dosage: UNK
     Route: 058
  2. CLOZARIL [Suspect]
     Active Substance: CLOZAPINE
     Indication: Product used for unknown indication
     Dosage: THE PATIENT WAS USUALLY TAKING CLOZARIL AT A DOSE OF APPROXIMATELY 175 TO 200MG
     Route: 048
  3. LITHIUM CARBONATE [Suspect]
     Active Substance: LITHIUM CARBONATE
     Indication: White blood cell count decreased
     Dosage: UNK
     Route: 065
  4. RIVOTRIL [Suspect]
     Active Substance: CLONAZEPAM
     Indication: Product used for unknown indication
     Dosage: UNK
     Route: 065
  5. MAGNESIUM OXIDE [Suspect]
     Active Substance: MAGNESIUM OXIDE
     Indication: Constipation
     Dosage: UNK
     Route: 065
  6. SODIUM PICOSULFATE [Suspect]
     Active Substance: SODIUM PICOSULFATE
     Indication: Constipation
     Dosage: UNK
     Route: 065
  7. REXULTI [Concomitant]
     Active Substance: BREXPIPRAZOLE
     Indication: Product used for unknown indication
     Dosage: UNK
     Route: 065

REACTIONS (17)
  - Hospitalisation [Unknown]
  - Hallucination, auditory [Unknown]
  - Schizoaffective disorder [Unknown]
  - Schizophrenia [Unknown]
  - Adverse event [Unknown]
  - Off label use [Unknown]
  - Neutrophil count decreased [Unknown]
  - White blood cell count decreased [Unknown]
  - Patient isolation [Unknown]
  - Logorrhoea [Unknown]
  - Thought broadcasting [Unknown]
  - Irritability [Unknown]
  - Scoliosis [Unknown]
  - Diarrhoea [Unknown]
  - Amnesia [Unknown]
  - Constipation [Unknown]
  - Back pain [Unknown]
